FAERS Safety Report 18022520 (Version 9)
Quarter: 2022Q1

REPORT INFORMATION
  Report Type: Report from Study
  Country: US (occurrence: US)
  Receive Date: 20200714
  Receipt Date: 20220217
  Transmission Date: 20220423
  Serious: No
  Sender: FDA-Public Use
  Company Number: NVSC2020US193320

PATIENT
  Age: 8 Year
  Sex: Male
  Weight: 28 kg

DRUGS (4)
  1. ILARIS [Suspect]
     Active Substance: CANAKINUMAB
     Indication: Still^s disease
     Dosage: 120 MG, QMO
     Route: 058
     Dates: start: 20200619
  2. ILARIS [Suspect]
     Active Substance: CANAKINUMAB
     Indication: Juvenile idiopathic arthritis
     Dosage: 110 MG, Q4W (EVERY 4 WEEKS)
     Route: 058
  3. ILARIS [Suspect]
     Active Substance: CANAKINUMAB
     Dosage: 128 MG, QMO
     Route: 058
     Dates: start: 20200619
  4. ILARIS [Suspect]
     Active Substance: CANAKINUMAB
     Dosage: 128 MG, QMO
     Route: 058
     Dates: start: 20211203, end: 20220103

REACTIONS (8)
  - Condition aggravated [Unknown]
  - Swelling [Unknown]
  - Back pain [Unknown]
  - Rash [Recovering/Resolving]
  - Epistaxis [Unknown]
  - Illness [Unknown]
  - Nasopharyngitis [Unknown]
  - Product dose omission issue [Unknown]

NARRATIVE: CASE EVENT DATE: 20210730
